FAERS Safety Report 6653389-7 (Version None)
Quarter: 2010Q1

REPORT INFORMATION
  Report Type: 
  Country: None (occurrence: None)
  Receive Date: 20100326
  Receipt Date: 20100317
  Transmission Date: 20100710
  Serious: Yes (Other)
  Sender: FDA-Public Use
  Company Number: PHHY2010JP05285

PATIENT
  Sex: Male
  Weight: 62 kg

DRUGS (7)
  1. ZOMETA [Suspect]
     Indication: METASTASES TO BONE
     Dosage: 4 MG  EVERY THREE OR FOUR WEEKS
     Route: 042
     Dates: start: 20071009, end: 20090804
  2. METHYCOBAL [Concomitant]
     Indication: HYPOAESTHESIA
     Dosage: 1500 MG, UNK
     Route: 048
     Dates: start: 20090616
  3. MAGLAX [Concomitant]
     Indication: CONSTIPATION
     Dosage: 600 MG, UNK
     Route: 048
     Dates: start: 20090406
  4. DECADRON [Concomitant]
     Indication: PROSTATE CANCER
     Dosage: 0.5 MG, UNK
     Route: 048
     Dates: start: 20080617
  5. FAMOTIDINE [Concomitant]
     Indication: STEROID THERAPY
     Dosage: 40 MG, UNK
     Route: 048
     Dates: start: 20070129
  6. FAMOTIDINE [Concomitant]
     Indication: STEROID THERAPY
     Dosage: 40 MG, UNK
     Route: 048
     Dates: start: 20070129
  7. HYPEN [Concomitant]
     Indication: PAIN
     Dosage: 400 MG, UNK
     Route: 048
     Dates: start: 20070305, end: 20090403

REACTIONS (11)
  - BONE DISORDER [None]
  - CONSTIPATION [None]
  - FISTULA [None]
  - HYPOAESTHESIA [None]
  - OEDEMA [None]
  - OSTEONECROSIS [None]
  - PAIN [None]
  - PRIMARY SEQUESTRUM [None]
  - PURULENCE [None]
  - TOOTH EXTRACTION [None]
  - TOOTHACHE [None]
